FAERS Safety Report 21801234 (Version 1)
Quarter: 2022Q4

REPORT INFORMATION
  Report Type: Report from Study
  Country: US (occurrence: US)
  Receive Date: 20221230
  Receipt Date: 20221230
  Transmission Date: 20230112
  Serious: No
  Sender: FDA-Public Use
  Company Number: US-ACORDA-ACO_171440_2022

PATIENT
  Age: 79 Year
  Sex: Female

DRUGS (3)
  1. INBRIJA [Suspect]
     Active Substance: LEVODOPA
     Indication: Parkinson^s disease
     Dosage: 2 DOSAGE FORM, PRN (NOT TO EXCEED 5 DOSES A DAY)
     Dates: start: 20220113
  2. INBRIJA [Suspect]
     Active Substance: LEVODOPA
     Indication: On and off phenomenon
  3. CARBIDOPA\LEVODOPA [Concomitant]
     Active Substance: CARBIDOPA\LEVODOPA
     Indication: Product used for unknown indication
     Dosage: 25/100 MILLIGRAM, 1 AND 1/2 TABLET FIVE TIMES DAILY AND 1--2 ADDITIONAL TABLESTS AS NEEDED
     Route: 065

REACTIONS (4)
  - Cough [Not Recovered/Not Resolved]
  - Choking sensation [Recovered/Resolved]
  - Retching [Recovered/Resolved]
  - Product residue present [Not Recovered/Not Resolved]

NARRATIVE: CASE EVENT DATE: 20220113
